FAERS Safety Report 17053139 (Version 1)
Quarter: 2019Q4

REPORT INFORMATION
  Report Type: Spontaneous
  Country: US (occurrence: US)
  Receive Date: 20191120
  Receipt Date: 20191120
  Transmission Date: 20200122
  Serious: No
  Sender: FDA-Public Use
  Company Number: US-PFIZER INC-2019424486

PATIENT

DRUGS (1)
  1. CYKLOKAPRON [Suspect]
     Active Substance: TRANEXAMIC ACID
     Indication: HAEMORRHAGE
     Dosage: UNK

REACTIONS (1)
  - Drug ineffective [Unknown]
